FAERS Safety Report 18845363 (Version 1)
Quarter: 2021Q1

REPORT INFORMATION
  Report Type: Spontaneous
  Country: US (occurrence: US)
  Receive Date: 20210204
  Receipt Date: 20210204
  Transmission Date: 20210419
  Serious: Yes (Hospitalization)
  Sender: FDA-Public Use
  Company Number: None

PATIENT
  Age: 30 Year
  Sex: Female
  Weight: 59 kg

DRUGS (5)
  1. VINCRISTINE SULFATE. [Suspect]
     Active Substance: VINCRISTINE SULFATE
     Dates: end: 20210115
  2. ONCASPAR [Suspect]
     Active Substance: PEGASPARGASE
     Dates: end: 20210111
  3. DEXAMETHASONE. [Suspect]
     Active Substance: DEXAMETHASONE
     Dates: end: 20210114
  4. DAUNORUBICIN [Suspect]
     Active Substance: DAUNORUBICIN
     Dates: end: 20210115
  5. CYTARABINE. [Suspect]
     Active Substance: CYTARABINE
     Dates: end: 20210109

REACTIONS (8)
  - Blood albumin decreased [None]
  - Sinus rhythm [None]
  - Anaemia [None]
  - Dehydration [None]
  - Malnutrition [None]
  - Orthostatic hypotension [None]
  - Heart rate increased [None]
  - Syncope [None]

NARRATIVE: CASE EVENT DATE: 20210120
